FAERS Safety Report 10096964 (Version 2)
Quarter: 2014Q2

REPORT INFORMATION
  Report Type: Spontaneous
  Country: US (occurrence: US)
  Receive Date: 20140422
  Receipt Date: 20140422
  Transmission Date: 20141212
  Serious: No
  Sender: FDA-Public Use
  Company Number: US-GILEAD-2012-0062121

PATIENT
  Age: 60 Year
  Sex: Female

DRUGS (4)
  1. LETAIRIS [Suspect]
     Indication: PULMONARY ARTERIAL HYPERTENSION
     Dosage: 10 MG, UNK
     Route: 048
     Dates: start: 20110120
  2. LETAIRIS [Suspect]
     Indication: UNEVALUABLE EVENT
  3. LETAIRIS [Suspect]
     Indication: PULMONARY HYPERTENSION
  4. TORSEMIDE [Concomitant]

REACTIONS (4)
  - Ascites [Unknown]
  - Arthralgia [Unknown]
  - Fatigue [Unknown]
  - Sluggishness [Unknown]
